FAERS Safety Report 8489190-1 (Version None)
Quarter: 2012Q3

REPORT INFORMATION
  Report Type: 
  Country: None (occurrence: None)
  Receive Date: 20120705
  Receipt Date: 20120625
  Transmission Date: 20120928
  Serious: Yes (Hospitalization, Other)
  Sender: FDA-Public Use
  Company Number: FR-ASTRAZENECA-2012SE43077

PATIENT
  Age: 903 Month
  Sex: Female

DRUGS (15)
  1. CYCLOPHOSPHAMIDE [Suspect]
     Route: 042
     Dates: start: 20041203, end: 20050502
  2. FEMARA [Suspect]
     Indication: BREAST CANCER
     Route: 048
     Dates: start: 20050401, end: 20061101
  3. FASLODEX [Suspect]
     Indication: BREAST CANCER
     Route: 030
     Dates: start: 20070201, end: 20070501
  4. AROMASIN [Suspect]
     Indication: BREAST CANCER
     Route: 048
     Dates: start: 20061101, end: 20070201
  5. CYCLOPHOSPHAMIDE [Suspect]
     Indication: BREAST CANCER
     Route: 042
     Dates: start: 20110201
  6. ESTRACYT [Suspect]
     Indication: BREAST CANCER
     Route: 048
     Dates: start: 20091203, end: 20110101
  7. NAVELBINE [Suspect]
     Indication: BREAST CANCER
     Dosage: 4 COURSES OF CHEMOTHERAPY 90 MG FROM DAY 1 TO DAY 8
     Route: 042
     Dates: start: 20070701, end: 20071101
  8. TAXOTERE [Suspect]
     Indication: BREAST CANCER
     Dosage: 3 COURSES OF CHEMOTHERAPY
     Route: 042
     Dates: start: 20050308, end: 20050419
  9. NAVOBAN [Suspect]
     Indication: BREAST CANCER
     Dosage: 4 COURSES OF CHEMOTHERAPY
     Route: 048
     Dates: start: 20070701, end: 20071101
  10. ARIMIDEX [Suspect]
     Indication: BREAST CANCER
     Route: 048
     Dates: start: 20080101, end: 20090201
  11. CYCLOPHOSPHAMIDE [Suspect]
     Route: 042
     Dates: start: 20110802
  12. FLUOROURACIL [Suspect]
     Indication: BREAST CANCER
     Dosage: 4 COURSES OF CHEMOTHERAPY
     Route: 042
     Dates: start: 20041203, end: 20050202
  13. DOXORUBICIN HCL [Suspect]
     Indication: BREAST CANCER
     Dosage: 17 COURSES OF CHEMOTHERAPY
     Route: 042
     Dates: start: 20071127, end: 20091105
  14. EPIRUBICIN HYDROCHLORIDE [Suspect]
     Indication: BREAST CANCER
     Dosage: 4 COURSES OF CHEMOTHERAPY
     Route: 042
     Dates: start: 20041203, end: 20050502
  15. XELODA [Suspect]
     Indication: BREAST CANCER
     Dosage: 4 COURSES OF CHEMOTHERAPY
     Route: 048
     Dates: start: 20070801, end: 20071101

REACTIONS (1)
  - TONGUE NEOPLASM MALIGNANT STAGE UNSPECIFIED [None]
